FAERS Safety Report 25238405 (Version 2)
Quarter: 2025Q3

REPORT INFORMATION
  Report Type: Spontaneous
  Country: US (occurrence: US)
  Receive Date: 20250425
  Receipt Date: 20250820
  Transmission Date: 20251021
  Serious: No
  Sender: BRISTOL-MYERS SQUIBB COMPANY
  Company Number: US-BRISTOL-MYERS SQUIBB COMPANY-2025-060942

PATIENT
  Age: 77 Year
  Sex: Female

DRUGS (1)
  1. IDHIFA [Suspect]
     Active Substance: ENASIDENIB MESYLATE
     Indication: Myelodysplastic syndrome
     Dosage: DOSE : 100MG;     FREQ : TAKE ONE TABLET ONCE DAILY
     Route: 048

REACTIONS (2)
  - Urinary tract infection [Unknown]
  - Off label use [Unknown]
